FAERS Safety Report 25193776 (Version 1)
Quarter: 2025Q2

REPORT INFORMATION
  Report Type: Report from Study
  Country: EG (occurrence: EG)
  Receive Date: 20250414
  Receipt Date: 20250414
  Transmission Date: 20250716
  Serious: No
  Sender: SANDOZ
  Company Number: EG-SANDOZ-SDZ2025EG022374

PATIENT
  Age: 11 Year
  Sex: Male

DRUGS (1)
  1. OMNITROPE [Suspect]
     Active Substance: SOMATROPIN
     Indication: Growth hormone deficiency
     Route: 058
     Dates: start: 20230222, end: 20250207

REACTIONS (3)
  - Incorrect dose administered by device [Unknown]
  - Product substitution issue [Unknown]
  - Device mechanical issue [Unknown]

NARRATIVE: CASE EVENT DATE: 20250207
